FAERS Safety Report 14399908 (Version 1)
Quarter: 2018Q1

REPORT INFORMATION
  Report Type: Spontaneous
  Country: US (occurrence: US)
  Receive Date: 20180117
  Receipt Date: 20180117
  Transmission Date: 20180509
  Serious: No
  Sender: FDA-Public Use
  Company Number: US-JNJFOC-20171228911

PATIENT
  Sex: Male

DRUGS (1)
  1. ZYTIGA [Suspect]
     Active Substance: ABIRATERONE ACETATE
     Indication: PRODUCT USED FOR UNKNOWN INDICATION
     Route: 048
     Dates: start: 20171018, end: 201712

REACTIONS (10)
  - Gastrooesophageal reflux disease [Unknown]
  - Dizziness [Unknown]
  - Diarrhoea [Unknown]
  - Muscle spasms [Unknown]
  - Ageusia [Unknown]
  - Confusional state [Unknown]
  - Constipation [Unknown]
  - Skin atrophy [Unknown]
  - Contusion [Unknown]
  - Hypoaesthesia [Unknown]
